FAERS Safety Report 6340879-X (Version None)
Quarter: 2009Q3

REPORT INFORMATION
  Report Type: 
  Country: None (occurrence: None)
  Receive Date: 20090904
  Receipt Date: 20090901
  Transmission Date: 20100115
  Serious: No
  Sender: FDA-Public Use
  Company Number: US-JNJFOC-20090901350

PATIENT
  Sex: Male
  Weight: 124.74 kg

DRUGS (1)
  1. DURAGESIC-100 [Suspect]
     Indication: BACK PAIN
     Route: 062

REACTIONS (2)
  - DEVICE ADHESION ISSUE [None]
  - WRONG TECHNIQUE IN DRUG USAGE PROCESS [None]
